FAERS Safety Report 18618371 (Version 2)
Quarter: 2020Q4

REPORT INFORMATION
  Report Type: Spontaneous
  Country: ES (occurrence: ES)
  Receive Date: 20201215
  Receipt Date: 20201231
  Transmission Date: 20210114
  Serious: Yes (Other)
  Sender: FDA-Public Use
  Company Number: ES-SA-2020SA352371

PATIENT

DRUGS (1)
  1. LANTUS [Suspect]
     Active Substance: INSULIN GLARGINE
     Indication: TYPE 2 DIABETES MELLITUS
     Dosage: UNK
     Route: 058
     Dates: end: 20201203

REACTIONS (10)
  - Hypoaesthesia oral [Unknown]
  - Illness [Recovered/Resolved]
  - Hypoglycaemia [Recovered/Resolved]
  - Foot deformity [Unknown]
  - Malaise [Recovered/Resolved]
  - Cerebellar stroke [Unknown]
  - Memory impairment [Unknown]
  - Tremor [Recovered/Resolved]
  - Chills [Recovered/Resolved]
  - Blood glucose increased [Unknown]

NARRATIVE: CASE EVENT DATE: 2017
